FAERS Safety Report 5915803-1 (Version None)
Quarter: 2008Q4

REPORT INFORMATION
  Report Type: 
  Country: None (occurrence: None)
  Receive Date: 20081010
  Receipt Date: 20081007
  Transmission Date: 20090506
  Serious: Yes (Life-Threatening, Hospitalization)
  Sender: FDA-Public Use
  Company Number: FR-ASTRAZENECA-2008CG01466

PATIENT
  Age: 25878 Day
  Sex: Female

DRUGS (8)
  1. MOPRAL [Suspect]
     Route: 048
     Dates: start: 20080918, end: 20080921
  2. AXEPIM [Suspect]
     Route: 042
     Dates: start: 20080918, end: 20080922
  3. PROZAC [Suspect]
     Route: 048
     Dates: start: 20080919, end: 20080922
  4. DOLIPRANE [Suspect]
     Route: 048
     Dates: start: 20080918, end: 20080922
  5. LEXOMIL [Suspect]
     Route: 048
     Dates: start: 20080919, end: 20080922
  6. SKENAN [Suspect]
     Route: 048
     Dates: start: 20080918, end: 20080922
  7. FORLAX [Suspect]
     Route: 048
     Dates: start: 20080919, end: 20080922
  8. LOVENOX [Suspect]
     Route: 058
     Dates: start: 20080919, end: 20080922

REACTIONS (4)
  - CONVULSION [None]
  - ENCEPHALOPATHY [None]
  - EPILEPSY [None]
  - RESPIRATORY DISORDER [None]
